FAERS Safety Report 15597451 (Version 1)
Quarter: 2018Q4

REPORT INFORMATION
  Report Type: Spontaneous
  Country: US (occurrence: US)
  Receive Date: 20181108
  Receipt Date: 20181108
  Transmission Date: 20190205
  Serious: Yes (Hospitalization, Other)
  Sender: FDA-Public Use
  Company Number: US-BRISTOL-MYERS SQUIBB COMPANY-BMS-2018-103732

PATIENT

DRUGS (1)
  1. ELIQUIS [Suspect]
     Active Substance: APIXABAN
     Indication: PRODUCT USED FOR UNKNOWN INDICATION
     Dosage: 2.5 MG, BID
     Route: 065

REACTIONS (6)
  - Thrombotic thrombocytopenic purpura [Unknown]
  - Confusional state [Unknown]
  - Hip fracture [Unknown]
  - Haemolytic uraemic syndrome [Unknown]
  - Petechiae [Unknown]
  - Haematuria [Unknown]
